FAERS Safety Report 6757991-3 (Version None)
Quarter: 2010Q2

REPORT INFORMATION
  Report Type: 
  Country: None (occurrence: None)
  Receive Date: 20100604
  Receipt Date: 20100604
  Transmission Date: 20101027
  Serious: Yes (Life-Threatening, Hospitalization, Other)
  Sender: FDA-Public Use
  Company Number: None

PATIENT
  Age: 57 Year
  Sex: Female
  Weight: 61.2356 kg

DRUGS (3)
  1. SIMPONI [Suspect]
     Indication: RHEUMATOID ARTHRITIS
     Dosage: PRE-FILLED AUTOINJECTOR ONCE A MONTH SQ
     Route: 058
     Dates: start: 20090630, end: 20090806
  2. METHOTREXATE [Concomitant]
  3. MEDROL [Concomitant]

REACTIONS (9)
  - ASTHENIA [None]
  - BLOOD PRESSURE DECREASED [None]
  - DISORIENTATION [None]
  - LEUKAEMIA [None]
  - NEUTROPENIA [None]
  - PAIN [None]
  - PLATELET COUNT DECREASED [None]
  - SYSTEMIC LUPUS ERYTHEMATOSUS [None]
  - VOMITING [None]
